FAERS Safety Report 26153551 (Version 1)
Quarter: 2025Q4

REPORT INFORMATION
  Report Type: Spontaneous
  Country: JP (occurrence: JP)
  Receive Date: 20251214
  Receipt Date: 20251214
  Transmission Date: 20260117
  Serious: Yes (Other)
  Sender: EISAI
  Company Number: JP-Eisai-202511918_LEN-RCC_P_1

PATIENT
  Age: 64 Year
  Sex: Female

DRUGS (2)
  1. LENVATINIB [Suspect]
     Active Substance: LENVATINIB
     Indication: Renal cell carcinoma
     Dosage: DOSE AND FREQUENCY WERE UNKNOWN
     Route: 048
     Dates: start: 20241015
  2. PEMBROLIZUMAB [Concomitant]
     Active Substance: PEMBROLIZUMAB
     Indication: Renal cell carcinoma
     Dosage: DOSE AND FREQUENCY WERE UNKNOWN
     Route: 041
     Dates: start: 20241015

REACTIONS (5)
  - Small intestinal perforation [Unknown]
  - Peritonitis [Unknown]
  - Cerebral artery embolism [Unknown]
  - Thrombophlebitis migrans [Unknown]
  - Peripheral artery occlusion [Unknown]
